FAERS Safety Report 5977553-5 (Version None)
Quarter: 2008Q4

REPORT INFORMATION
  Report Type: 
  Country: None (occurrence: None)
  Receive Date: 20081201
  Receipt Date: 20081201
  Transmission Date: 20090506
  Serious: Yes (Other)
  Sender: FDA-Public Use
  Company Number: None

PATIENT
  Age: 24 Year
  Sex: Female
  Weight: 88.905 kg

DRUGS (2)
  1. PROAIR HFA [Suspect]
     Indication: ASTHMA
     Dosage: 2 PUFFS ONCE INHAL
     Dates: start: 20081126, end: 20081126
  2. PROAIR HFA [Suspect]
     Indication: BRONCHITIS CHRONIC
     Dosage: 2 PUFFS ONCE INHAL
     Dates: start: 20081126, end: 20081126

REACTIONS (7)
  - DRUG INEFFECTIVE [None]
  - FEELING ABNORMAL [None]
  - LUNG DISORDER [None]
  - OROPHARYNGEAL PAIN [None]
  - PRODUCT QUALITY ISSUE [None]
  - VOMITING [None]
  - WHEEZING [None]
